FAERS Safety Report 5976142-6 (Version None)
Quarter: 2008Q4

REPORT INFORMATION
  Report Type: 
  Country: None (occurrence: None)
  Receive Date: 20081202
  Receipt Date: 20081127
  Transmission Date: 20090506
  Serious: Yes (Hospitalization)
  Sender: FDA-Public Use
  Company Number: JP-EISAI MEDICAL RESEARCH-E2020-03673-SPO-JP

PATIENT
  Age: 89 Year
  Sex: Female
  Weight: 48 kg

DRUGS (4)
  1. ARICEPT [Suspect]
     Indication: DEMENTIA ALZHEIMER'S TYPE
     Route: 048
     Dates: start: 20070201, end: 20081107
  2. ENALAMERCK [Interacting]
     Indication: HYPERTENSION
     Dosage: UNKNOWN
     Route: 048
  3. CALSLOT [Interacting]
     Indication: HYPERTENSION
     Dosage: UNKNOWN
     Route: 048
  4. LUPRAC [Interacting]
     Indication: HYPERTENSION
     Dosage: UNKNOWN
     Route: 048

REACTIONS (2)
  - DRUG INTERACTION [None]
  - SYNCOPE [None]
